FAERS Safety Report 13362610 (Version 6)
Quarter: 2018Q2

REPORT INFORMATION
  Report Type: Spontaneous
  Country: US (occurrence: US)
  Receive Date: 20170323
  Receipt Date: 20180611
  Transmission Date: 20180711
  Serious: No
  Sender: FDA-Public Use
  Company Number: US-PFIZER INC-2017126027

PATIENT
  Age: 54 Year
  Sex: Female

DRUGS (4)
  1. XELJANZ [Suspect]
     Active Substance: TOFACITINIB CITRATE
     Dosage: 5 MG, UNK (1 TABLET EVERY OTHER DAY, AND 2 TABLETS EVERY OTHER DAY)
     Route: 048
  2. XELJANZ [Suspect]
     Active Substance: TOFACITINIB CITRATE
     Dosage: 5 MG, 2X/DAY (ON ALTERNATING DAYS)
     Route: 048
  3. XELJANZ [Suspect]
     Active Substance: TOFACITINIB CITRATE
     Indication: RHEUMATOID ARTHRITIS
     Dosage: 5 MG, 2X/DAY
  4. XELJANZ [Suspect]
     Active Substance: TOFACITINIB CITRATE
     Dosage: 5 MG, ALTERNATE DAY
     Route: 048

REACTIONS (2)
  - Nausea [Unknown]
  - Product use issue [Unknown]

NARRATIVE: CASE EVENT DATE: 20170321
